FAERS Safety Report 21016173 (Version 2)
Quarter: 2022Q3

REPORT INFORMATION
  Report Type: Report from Study
  Country: EG (occurrence: EG)
  Receive Date: 20220628
  Receipt Date: 20220713
  Transmission Date: 20221026
  Serious: Yes (Other)
  Sender: FDA-Public Use
  Company Number: EG-BAYER-2022A086280

PATIENT
  Sex: Female

DRUGS (10)
  1. EYLEA [Suspect]
     Active Substance: AFLIBERCEPT
     Indication: Macular oedema
     Dosage: UNK, SOLUTION FOR INJECTION; STRENGTH: 40MG/ML
     Route: 031
     Dates: start: 20210928
  2. NITROMACK [Concomitant]
     Indication: Cardiac disorder
     Dosage: UNK
  3. METACARDIA [Concomitant]
     Indication: Cardiac disorder
     Dosage: UNK
  4. JUSPRIN [Concomitant]
     Indication: Cardiac disorder
     Dosage: UNK
  5. LEVOTHYROXINE [Concomitant]
     Active Substance: LEVOTHYROXINE
     Indication: Hypothyroidism
     Dosage: UNK
  6. FLEXILAX [DICLOFENAC POTASSIUM;METHOCARBAMOL] [Concomitant]
     Indication: Back disorder
     Dosage: UNK
  7. FLEXILAX [DICLOFENAC POTASSIUM;METHOCARBAMOL] [Concomitant]
     Indication: Muscle relaxant therapy
  8. CORTISONE [Concomitant]
     Active Substance: CORTISONE
     Indication: Product used for unknown indication
     Dosage: UNK
     Dates: start: 202204
  9. CORTISONE [Concomitant]
     Active Substance: CORTISONE
     Dosage: UNK
     Dates: start: 202205
  10. UNSPECIFIED INGREDIENT [Concomitant]
     Active Substance: UNSPECIFIED INGREDIENT
     Indication: Back disorder
     Dosage: UNK

REACTIONS (8)
  - Eye opacity [Not Recovered/Not Resolved]
  - Visual impairment [Not Recovered/Not Resolved]
  - Retinal disorder [Not Recovered/Not Resolved]
  - Spinal disorder [Recovered/Resolved]
  - Neuralgia [Recovered/Resolved]
  - Retinal detachment [Not Recovered/Not Resolved]
  - Back disorder [Recovered/Resolved]
  - Blood glucose increased [Unknown]

NARRATIVE: CASE EVENT DATE: 20220101
